FAERS Safety Report 12296786 (Version 2)
Quarter: 2016Q2

REPORT INFORMATION
  Report Type: Spontaneous
  Country: US (occurrence: US)
  Receive Date: 20160422
  Receipt Date: 20160428
  Transmission Date: 20160815
  Serious: Yes (Other)
  Sender: FDA-Public Use
  Company Number: US-GLAXOSMITHKLINE-US2016056468

PATIENT
  Sex: Female

DRUGS (2)
  1. CREST [Suspect]
     Active Substance: SODIUM FLUORIDE
     Indication: PRODUCT USED FOR UNKNOWN INDICATION
     Dosage: UNK
  2. SENSODYNE TRUE WHITE [Suspect]
     Active Substance: POTASSIUM NITRATE\SODIUM FLUORIDE
     Indication: DENTAL CARE
     Dosage: UNK

REACTIONS (5)
  - Gingival pain [Unknown]
  - Gingival disorder [Unknown]
  - Chemical burn of gastrointestinal tract [Unknown]
  - Oral discomfort [Unknown]
  - Gingival blister [Unknown]
